FAERS Safety Report 9173602 (Version 1)
Quarter: 2013Q1

REPORT INFORMATION
  Report Type: Spontaneous
  Country: GB (occurrence: None)
  Receive Date: 20130314
  Receipt Date: 20130314
  Transmission Date: 20140127
  Serious: Yes (Hospitalization)
  Sender: FDA-Public Use
  Company Number: 2013AP003593

PATIENT
  Age: 45 Year
  Sex: Male

DRUGS (3)
  1. PAROXETINE (PAROXETINE) [Suspect]
  2. DIAZEPAM (DIAZEPAM) [Suspect]
  3. CLOZARIL (CLOZAPINE) [Suspect]
     Indication: SCHIZOPHRENIA
     Route: 048
     Dates: start: 19960107

REACTIONS (3)
  - Blood pressure fluctuation [None]
  - Overdose [None]
  - Pulse abnormal [None]
